FAERS Safety Report 11435149 (Version 3)
Quarter: 2015Q3

REPORT INFORMATION
  Report Type: Spontaneous
  Country: US (occurrence: None)
  Receive Date: 20150831
  Receipt Date: 20150917
  Transmission Date: 20151125
  Serious: Yes (Hospitalization, Other)
  Sender: FDA-Public Use
  Company Number: US-MDT-ADR-2015-01660

PATIENT
  Age: 27 Year
  Sex: Female

DRUGS (1)
  1. BACLOFEN INTRATHECAL 500 MCG/ML [Suspect]
     Active Substance: BACLOFEN
     Indication: MUSCLE SPASTICITY

REACTIONS (12)
  - Metabolic disorder [None]
  - Hepatic enzyme increased [None]
  - Headache [None]
  - Dehydration [None]
  - Anaesthetic complication [None]
  - Nutritional condition abnormal [None]
  - Nausea [None]
  - Computerised tomogram abnormal [None]
  - Post lumbar puncture syndrome [None]
  - Vomiting [None]
  - Cerebrospinal fluid leakage [None]
  - Adverse drug reaction [None]
